FAERS Safety Report 6753857-3 (Version None)
Quarter: 2010Q2

REPORT INFORMATION
  Report Type: 
  Country: None (occurrence: None)
  Receive Date: 20100520
  Receipt Date: 20090506
  Transmission Date: 20101027
  Serious: Yes (Hospitalization, Other)
  Sender: FDA-Public Use
  Company Number: 2009209559

PATIENT
  Age: 54 Year
  Sex: Female
  Weight: 56 kg

DRUGS (10)
  1. PROVERA [Suspect]
     Indication: HORMONE REPLACEMENT THERAPY
     Dates: start: 19940903, end: 19980922
  2. MEDROXYPROGESTERONE ACETATE (MEDROXYPROGESTERONE ACETATE) UNKNOWN [Suspect]
     Indication: HORMONE REPLACEMENT THERAPY
     Dates: start: 19991130, end: 20020108
  3. PREMARIN [Suspect]
     Indication: HORMONE REPLACEMENT THERAPY
     Dates: start: 19950824, end: 19980922
  4. PREMPHASE (PREMARIN;CYCRIN 14/14) [Suspect]
     Indication: HORMONE REPLACEMENT THERAPY
     Dates: start: 19981001, end: 19991108
  5. PREMPRO [Suspect]
     Indication: HORMONE REPLACEMENT THERAPY
     Dates: start: 20020627, end: 20020722
  6. ESTRATEST [Suspect]
     Indication: HORMONE REPLACEMENT THERAPY
     Dates: start: 19950928
  7. CENESTIN [Suspect]
     Indication: HORMONE REPLACEMENT THERAPY
     Dates: start: 19991130, end: 20020108
  8. METROGEL [Concomitant]
  9. FOSAMAX [Concomitant]
  10. CIPROFLOXACIN [Concomitant]

REACTIONS (1)
  - BREAST CANCER METASTATIC [None]
